FAERS Safety Report 8581591-6 (Version None)
Quarter: 2012Q3

REPORT INFORMATION
  Report Type: 
  Country: None (occurrence: None)
  Receive Date: 20120809
  Receipt Date: 20120801
  Transmission Date: 20120928
  Serious: No
  Sender: FDA-Public Use
  Company Number: JP-ASTELLAS-2012JP007012

PATIENT
  Age: 58 Year
  Sex: Male

DRUGS (1)
  1. FUNGUARD [Suspect]
     Indication: CANDIDIASIS
     Dosage: 150 MG, UID/QD
     Route: 041
     Dates: start: 20120726, end: 20120726

REACTIONS (1)
  - PERITONEAL EFFLUENT ABNORMAL [None]
